FAERS Safety Report 8169865 (Version 3)
Quarter: 2012Q4

REPORT INFORMATION
  Report Type: Report from Study
  Country: DE (occurrence: DE)
  Receive Date: 20111005
  Receipt Date: 20121016
  Transmission Date: 20130627
  Serious: Yes (Other)
  Sender: FDA-Public Use
  Company Number: DE-UCBSA-023964

PATIENT
  Age: 75 Year
  Sex: Female

DRUGS (13)
  1. CERTOLIZUMAB PEGOL [Suspect]
     Indication: RHEUMATOID ARTHRITIS
     Route: 058
     Dates: start: 20101013, end: 20101216
  2. PREDNISOLONE [Concomitant]
     Indication: RHEUMATOID ARTHRITIS
     Dosage: 5-20 MG
     Dates: start: 20081022
  3. PREDNISOLONE [Concomitant]
     Indication: RHEUMATOID ARTHRITIS
     Route: 048
     Dates: start: 20101216
  4. METHOTREXATE [Concomitant]
     Indication: RHEUMATOID ARTHRITIS
     Dosage: SUFFICIENT QUANTITY
     Dates: start: 20081022
  5. FOLIC ACID [Concomitant]
     Indication: RHEUMATOID ARTHRITIS
     Dosage: SUFFICIENT QUANTITY
     Dates: start: 20090715
  6. IBUPROFEN [Concomitant]
     Indication: RHEUMATOID ARTHRITIS
     Dosage: PRN
     Dates: start: 20081022, end: 20090422
  7. PANTOPRAZOLE [Concomitant]
     Indication: GASTRIC DISORDER
     Dosage: MORNING
     Dates: start: 201010
  8. PANTOPRAZOLE [Concomitant]
     Indication: ABDOMINAL PAIN UPPER
     Dosage: MORNING
     Dates: start: 201010
  9. AMLODIPINE [Concomitant]
     Indication: HYPERTENSION
     Dates: start: 201011
  10. MARCUMAR [Concomitant]
     Indication: COAGULOPATHY
     Dosage: 1/2-1
     Dates: start: 20101022
  11. EUTHYROX [Concomitant]
     Indication: HYPOTHYROIDISM
     Dosage: MORNING
     Dates: start: 1991
  12. RAMIPRIL [Concomitant]
     Indication: HYPERTENSION
     Dosage: 5/25 mg, MORNING
     Dates: start: 200802
  13. AMLODIPINE [Concomitant]
     Indication: HYPERTENSION
     Dates: start: 201011

REACTIONS (1)
  - Retinal artery occlusion [Recovered/Resolved]
